FAERS Safety Report 13435729 (Version 4)
Quarter: 2017Q3

REPORT INFORMATION
  Report Type: Spontaneous
  Country: US (occurrence: US)
  Receive Date: 20170413
  Receipt Date: 20170706
  Transmission Date: 20171127
  Serious: No
  Sender: FDA-Public Use
  Company Number: PHEH2017US010208

PATIENT
  Sex: Female

DRUGS (1)
  1. TRAVATAN Z [Suspect]
     Active Substance: TRAVOPROST
     Indication: PRODUCT USED FOR UNKNOWN INDICATION
     Route: 047

REACTIONS (6)
  - Eyelids pruritus [Unknown]
  - Erythema of eyelid [Unknown]
  - Product quality issue [Unknown]
  - Eyelid disorder [Unknown]
  - Eyelid oedema [Unknown]
  - Product dropper issue [Unknown]
